FAERS Safety Report 9879139 (Version 1)
Quarter: 2014Q1

REPORT INFORMATION
  Report Type: Spontaneous
  Country: US (occurrence: US)
  Receive Date: 20140206
  Receipt Date: 20140206
  Transmission Date: 20141002
  Serious: No
  Sender: FDA-Public Use
  Company Number: US-ALLERGAN-1313320US

PATIENT
  Sex: Female

DRUGS (1)
  1. BOTOX [Suspect]
     Indication: PAIN
     Dosage: 20 UNITS, SINGLE
     Route: 030

REACTIONS (3)
  - Skin tightness [Unknown]
  - Hypoaesthesia [Unknown]
  - Eyelid ptosis [Unknown]
